FAERS Safety Report 25451715 (Version 2)
Quarter: 2025Q2

REPORT INFORMATION
  Report Type: Spontaneous
  Country: US (occurrence: US)
  Receive Date: 20250618
  Receipt Date: 20250630
  Transmission Date: 20250716
  Serious: Yes (Other)
  Sender: SANOFI AVENTIS
  Company Number: US-SA-2025SA171226

PATIENT
  Age: 27 Year
  Sex: Male
  Weight: 74.8 kg

DRUGS (1)
  1. XENPOZYME [Suspect]
     Active Substance: OLIPUDASE ALFA-RPCP
     Route: 042

REACTIONS (2)
  - Urticaria [Recovered/Resolved]
  - Rash [Not Recovered/Not Resolved]
